FAERS Safety Report 4925286-6 (Version None)
Quarter: 2006Q1

REPORT INFORMATION
  Report Type: 
  Country: None (occurrence: None)
  Receive Date: 20060228
  Receipt Date: 20051217
  Transmission Date: 20060701
  Serious: Yes (Congenital Anomaly, Other)
  Sender: FDA-Public Use
  Company Number: GB-GLAXOSMITHKLINE-B0404097B

PATIENT
  Age: 1 Year

DRUGS (3)
  1. LAMOTRIGINE [Suspect]
     Dosage: 100MG UNKNOWN
  2. LEVONORGESTREL AND ETHINYL ESTRADIOL [Suspect]
     Indication: CONTRACEPTION
  3. VALPROATE SODIUM [Concomitant]
     Indication: EPILEPSY
     Dosage: 600MG PER DAY
     Dates: start: 20020702

REACTIONS (3)
  - CONGENITAL ANOMALY [None]
  - DRUG EXPOSURE DURING PREGNANCY [None]
  - PLACENTAL DISORDER [None]
